FAERS Safety Report 6018277-8 (Version None)
Quarter: 2008Q4

REPORT INFORMATION
  Report Type: 
  Country: None (occurrence: None)
  Receive Date: 20081223
  Receipt Date: 20081217
  Transmission Date: 20090506
  Serious: Yes (Other)
  Sender: FDA-Public Use
  Company Number: PHHY2008DE32503

PATIENT
  Age: 68 Year
  Sex: Male

DRUGS (5)
  1. VOLTAREN [Suspect]
     Indication: INFLAMMATION
     Dosage: 75 MG, QD
     Route: 048
     Dates: start: 20081101
  2. ASPIRIN [Concomitant]
     Route: 048
  3. AMLODIPINE [Concomitant]
     Route: 048
  4. MAGNETRANS FORTE [Concomitant]
     Route: 048
  5. GLUCOPHAGE [Concomitant]
     Dosage: 100 MG
     Route: 048

REACTIONS (7)
  - AMNESIA [None]
  - CEREBRAL DISORDER [None]
  - FATIGUE [None]
  - HEARING DISABILITY [None]
  - MUSCLE SPASMS [None]
  - POLYURIA [None]
  - VISUAL IMPAIRMENT [None]
